FAERS Safety Report 19876443 (Version 2)
Quarter: 2021Q4

REPORT INFORMATION
  Report Type: Spontaneous
  Country: CA (occurrence: CA)
  Receive Date: 20210924
  Receipt Date: 20211223
  Transmission Date: 20220304
  Serious: Yes (Death, Hospitalization, Other)
  Sender: FDA-Public Use
  Company Number: CA-AUROBINDO-AUR-APL-2021-039769

PATIENT
  Age: 24 Year
  Sex: Female

DRUGS (3)
  1. GABAPENTIN [Suspect]
     Active Substance: GABAPENTIN
     Indication: Product used for unknown indication
     Dosage: 25.5 GRAM
     Route: 048
  2. ACETAMINOPHEN [Suspect]
     Active Substance: ACETAMINOPHEN
     Indication: Product used for unknown indication
     Dosage: 50 GRAM
     Route: 048
  3. MORPHINE SULFATE [Suspect]
     Active Substance: MORPHINE SULFATE
     Indication: Product used for unknown indication
     Dosage: 16 MILLIGRAM
     Route: 048

REACTIONS (12)
  - Hypoglycaemia [Fatal]
  - Acute hepatic failure [Fatal]
  - Coagulopathy [Fatal]
  - Continuous haemodiafiltration [Fatal]
  - Encephalopathy [Fatal]
  - Haemodialysis [Fatal]
  - Overdose [Fatal]
  - Depressed level of consciousness [Fatal]
  - Haemorrhage [Fatal]
  - Liver injury [Fatal]
  - Metabolic acidosis [Fatal]
  - Oedema [Fatal]
